FAERS Safety Report 24359074 (Version 2)
Quarter: 2024Q4

REPORT INFORMATION
  Report Type: Spontaneous
  Country: US (occurrence: US)
  Receive Date: 20240924
  Receipt Date: 20241024
  Transmission Date: 20250115
  Serious: No
  Sender: ABBVIE
  Company Number: US-ABBVIE-5935663

PATIENT
  Age: 33 Year
  Weight: 45 kg

DRUGS (4)
  1. CANASA [Suspect]
     Active Substance: MESALAMINE
     Indication: Irritable bowel syndrome
     Dosage: 1000 MILLIGRAM?MESALAZINE 1 GM SUP
     Route: 054
     Dates: start: 2016, end: 20240310
  2. CANASA [Suspect]
     Active Substance: MESALAMINE
     Indication: Irritable bowel syndrome
     Dosage: 2000 MILLIGRAM?MESALAZINE 1 GM SUP
     Route: 054
     Dates: start: 20240310, end: 202408
  3. VITAMIN D [Concomitant]
     Active Substance: VITAMIN D NOS
     Indication: Vitamin supplementation
  4. IRON [Concomitant]
     Active Substance: IRON
     Indication: Mineral supplementation

REACTIONS (3)
  - Insomnia [Recovering/Resolving]
  - Gastrointestinal inflammation [Not Recovered/Not Resolved]
  - Off label use [Not Recovered/Not Resolved]

NARRATIVE: CASE EVENT DATE: 20240301
